FAERS Safety Report 21928154 (Version 1)
Quarter: 2023Q1

REPORT INFORMATION
  Report Type: Spontaneous
  Country: US (occurrence: US)
  Receive Date: 20230130
  Receipt Date: 20230130
  Transmission Date: 20230417
  Serious: Yes (Hospitalization, Other)
  Sender: FDA-Public Use
  Company Number: US-BRISTOL-MYERS SQUIBB COMPANY-2023-013417

PATIENT
  Age: 64 Year
  Sex: Female
  Weight: 70.30 kg

DRUGS (1)
  1. REVLIMID [Suspect]
     Active Substance: LENALIDOMIDE
     Indication: Plasma cell myeloma
     Dosage: 10 MG 21 DAY OF 28 DAY CYCLE
     Route: 048

REACTIONS (1)
  - Cerebrovascular accident [Unknown]
